FAERS Safety Report 5701865-3 (Version None)
Quarter: 2008Q2

REPORT INFORMATION
  Report Type: 
  Country: None (occurrence: None)
  Receive Date: 20080411
  Receipt Date: 20080401
  Transmission Date: 20081010
  Serious: Yes (Hospitalization)
  Sender: FDA-Public Use
  Company Number: FR-BRISTOL-MYERS SQUIBB COMPANY-14134035

PATIENT
  Age: 78 Year
  Sex: Female

DRUGS (4)
  1. SKENAN [Suspect]
     Indication: SCIATICA
     Dates: start: 20080225, end: 20080227
  2. METFORMIN HCL [Suspect]
     Dates: end: 20080227
  3. HYPERIUM [Suspect]
     Dates: end: 20080227
  4. NARCAN [Concomitant]

REACTIONS (8)
  - CONFUSIONAL STATE [None]
  - DEHYDRATION [None]
  - ENCEPHALOPATHY [None]
  - FALL [None]
  - INFLAMMATION [None]
  - MICROCYTIC ANAEMIA [None]
  - MIOSIS [None]
  - OVERDOSE [None]
